FAERS Safety Report 8777699 (Version 3)
Quarter: 2013Q1

REPORT INFORMATION
  Report Type: Spontaneous
  Country: DE (occurrence: DE)
  Receive Date: 20120911
  Receipt Date: 20130313
  Transmission Date: 20140127
  Serious: Yes (Other)
  Sender: FDA-Public Use
  Company Number: DE-JNJFOC-20120904284

PATIENT
  Age: 78 Year
  Sex: Female
  Weight: 78 kg

DRUGS (8)
  1. XARELTO [Suspect]
     Indication: CEREBROVASCULAR ACCIDENT PROPHYLAXIS
     Route: 048
     Dates: start: 20120322
  2. XARELTO [Suspect]
     Indication: ATRIAL FIBRILLATION
     Route: 048
     Dates: start: 20120322
  3. SIMVASTATIN [Concomitant]
     Route: 048
  4. NOVODIGAL [Concomitant]
     Route: 048
  5. METOPROLOL [Concomitant]
     Route: 048
  6. AMLODIPINE [Concomitant]
     Route: 048
  7. RAMIPRIL [Concomitant]
     Route: 048
  8. HCT [Concomitant]
     Route: 048

REACTIONS (1)
  - Gout [Not Recovered/Not Resolved]
